FAERS Safety Report 6437062-6 (Version None)
Quarter: 2009Q4

REPORT INFORMATION
  Report Type: 
  Country: None (occurrence: None)
  Receive Date: 20091112
  Receipt Date: 20091104
  Transmission Date: 20100525
  Serious: Yes (Other)
  Sender: FDA-Public Use
  Company Number: KR-JNJFOC-20090907427

PATIENT
  Age: 48 Year
  Sex: Female

DRUGS (1)
  1. TOPAMAX [Suspect]
     Indication: MIGRAINE PROPHYLAXIS
     Dosage: 2 OR 3 TABLETS/ DAY; WAS ON TOPAMAX SINCE 7/ 8 YEARS
     Route: 048

REACTIONS (11)
  - ACNE [None]
  - ASTHMA [None]
  - CHOLELITHIASIS [None]
  - ELECTROCARDIOGRAM ABNORMAL [None]
  - HEPATIC CIRRHOSIS [None]
  - INFECTION PARASITIC [None]
  - MEMORY IMPAIRMENT [None]
  - OEDEMA [None]
  - SPEECH DISORDER [None]
  - VISION BLURRED [None]
  - WEIGHT DECREASED [None]
